FAERS Safety Report 10656496 (Version 1)
Quarter: 2014Q4

REPORT INFORMATION
  Report Type: Report from Study
  Country: NL (occurrence: NL)
  Receive Date: 20141216
  Receipt Date: 20141216
  Transmission Date: 20150529
  Serious: Yes (Hospitalization)
  Sender: FDA-Public Use
  Company Number: NL-ABBVIE-14P-114-1318878-00

PATIENT
  Sex: Female
  Weight: 3.27 kg

DRUGS (1)
  1. SYNAGIS [Suspect]
     Active Substance: PALIVIZUMAB
     Indication: HEART DISEASE CONGENITAL
     Route: 030
     Dates: start: 20141024

REACTIONS (2)
  - Cardiac valve disease [Not Recovered/Not Resolved]
  - Underweight [Not Recovered/Not Resolved]
